FAERS Safety Report 25185114 (Version 1)
Quarter: 2025Q2

REPORT INFORMATION
  Report Type: Spontaneous
  Country: US (occurrence: US)
  Receive Date: 20250410
  Receipt Date: 20250410
  Transmission Date: 20250717
  Serious: Yes (Other)
  Sender: AMGEN
  Company Number: US-AMGEN-USASP2025065313

PATIENT
  Age: 43 Year
  Sex: Female

DRUGS (13)
  1. TRASTUZUMAB [Suspect]
     Active Substance: TRASTUZUMAB
     Indication: Breast cancer
     Dosage: UNK UNK, Q3WK
     Route: 065
  2. TRASTUZUMAB [Suspect]
     Active Substance: TRASTUZUMAB
     Dosage: 8 MILLIGRAM/KILOGRAM, Q3WK
     Route: 065
  3. TRASTUZUMAB [Suspect]
     Active Substance: TRASTUZUMAB
     Dosage: 6 MILLIGRAM/KILOGRAM, Q3WK
     Route: 065
  4. PEGFILGRASTIM [Suspect]
     Active Substance: PEGFILGRASTIM
     Indication: Neutropenia
     Route: 065
  5. DOCETAXEL [Concomitant]
     Active Substance: DOCETAXEL
     Dosage: UNK UNK, Q3WK
     Route: 065
  6. DOCETAXEL [Concomitant]
     Active Substance: DOCETAXEL
     Route: 065
  7. CARBOPLATIN [Concomitant]
     Active Substance: CARBOPLATIN
     Dosage: UNK UNK, Q3WK
     Route: 065
  8. PERTUZUMAB [Concomitant]
     Active Substance: PERTUZUMAB
     Dosage: UNK UNK, Q3WK
     Route: 065
  9. PERTUZUMAB [Concomitant]
     Active Substance: PERTUZUMAB
     Dosage: 840 MILLIGRAM, Q3WK
     Route: 065
  10. PERTUZUMAB [Concomitant]
     Active Substance: PERTUZUMAB
     Dosage: 420 MILLIGRAM, Q3WK
     Route: 065
  11. APREPITANT [Concomitant]
     Active Substance: APREPITANT
  12. DEXAMETHASONE [Concomitant]
     Active Substance: DEXAMETHASONE
  13. PALONOSETRON [Concomitant]
     Active Substance: PALONOSETRON

REACTIONS (2)
  - Cystitis haemorrhagic [Unknown]
  - Off label use [Unknown]
